FAERS Safety Report 8780266 (Version 1)
Quarter: 2012Q4

REPORT INFORMATION
  Report Type: Spontaneous
  Country: US (occurrence: None)
  Receive Date: 20120829
  Receipt Date: 20120829
  Transmission Date: 20130627
  Serious: Yes (Hospitalization)
  Sender: FDA-Public Use
  Company Number: 2012-003089

PATIENT
  Age: 68 Year

DRUGS (3)
  1. ACTONEL (RISEDRONATE SODIUM) TABLET, 35MG [Suspect]
     Indication: OSTEOPENIA
  2. DIFLUNISAL [Concomitant]
  3. AMLODIPINE (AMLODIPINE) [Concomitant]

REACTIONS (2)
  - Osteonecrosis [None]
  - Gastrooesophageal reflux disease [None]
